APPROVED DRUG PRODUCT: METHOCARBAMOL
Active Ingredient: METHOCARBAMOL
Strength: 500MG
Dosage Form/Route: TABLET;ORAL
Application: A200958 | Product #001 | TE Code: AA
Applicant: BOSTAL LLC
Approved: Oct 21, 2011 | RLD: No | RS: No | Type: RX